FAERS Safety Report 24553771 (Version 1)
Quarter: 2024Q4

REPORT INFORMATION
  Report Type: Report from Study
  Country: US (occurrence: US)
  Receive Date: 20241028
  Receipt Date: 20241028
  Transmission Date: 20250115
  Serious: No
  Sender: ROCHE
  Company Number: US-ROCHE-10000040130

PATIENT
  Sex: Male
  Weight: 28.4 kg

DRUGS (1)
  1. SOMATROPIN [Suspect]
     Active Substance: SOMATROPIN
     Indication: Hypopituitarism
     Route: 058

REACTIONS (5)
  - Off label use [Unknown]
  - Insomnia [Unknown]
  - Sleep disorder [Unknown]
  - Septo-optic dysplasia [Unknown]
  - Visual impairment [Unknown]
